FAERS Safety Report 10461337 (Version 1)
Quarter: 2014Q3

REPORT INFORMATION
  Report Type: Spontaneous
  Country: JP (occurrence: None)
  Receive Date: 20140916
  Receipt Date: 20140916
  Transmission Date: 20150326
  Serious: Yes (Hospitalization)
  Sender: FDA-Public Use
  Company Number: INT_00410_2014

PATIENT
  Age: 47 Year
  Sex: Female

DRUGS (3)
  1. CISPLATIN (CISPLATIN) (HQ SPECIALTY) [Suspect]
     Active Substance: CISPLATIN
     Indication: CERVIX CARCINOMA STAGE II
     Dosage: (50 MG/M2 [DAY 1; TWO COURSES WITH INTERVAL OF 3 WEEKS BETWEEN COURSES] INTRAVENOUS (NOT OTHERWISE SPECIFIED)), (50 MG/M2, [DAY 1] INTRAVENOUS (NOT OTHERWISE SPECIFIED))
     Route: 042
  2. PACLITAXEL (PACLITAXEL) (HQ SPECIALTY) [Suspect]
     Active Substance: PACLITAXEL
     Indication: CERVIX CARCINOMA STAGE II
     Dosage: (175 MG/M2[DAY 1; TWO COURSES WITH INTERVAL OF 3 WEEKS BETWEEN COURSES]INTRAVENOUS(NOT OTHERWISE SPECIFIED)), (50 MG/M2,[DAY 1]INTRAVENOUS(NOT OTHERWISE SPECIFIED))
     Route: 042
  3. RADIOTHERAPY (UNKNOWN) [Concomitant]

REACTIONS (11)
  - Oesophagitis [None]
  - Streptococcal infection [None]
  - Continuous haemodiafiltration [None]
  - Abdominal pain upper [None]
  - Pleural effusion [None]
  - Leukopenia [None]
  - Septic shock [None]
  - Cardiac arrest [None]
  - Dyspnoea [None]
  - Disseminated intravascular coagulation [None]
  - Pulmonary embolism [None]
